FAERS Safety Report 17634718 (Version 1)
Quarter: 2020Q2

REPORT INFORMATION
  Report Type: Report from Study
  Country: CN (occurrence: CN)
  Receive Date: 20200407
  Receipt Date: 20200407
  Transmission Date: 20200713
  Serious: Yes (Hospitalization)
  Sender: FDA-Public Use
  Company Number: CN-BRISTOL-MYERS SQUIBB COMPANY-BMS-2020-022822

PATIENT
  Age: 47 Year
  Sex: Male

DRUGS (1)
  1. NIVOLUMAB [Suspect]
     Active Substance: NIVOLUMAB
     Indication: SQUAMOUS CELL CARCINOMA OF HEAD AND NECK
     Dosage: 240 MILLIGRAM, Q3WK
     Route: 042
     Dates: start: 20191222

REACTIONS (4)
  - Pain in extremity [Unknown]
  - Spinal pain [Unknown]
  - Movement disorder [Unknown]
  - Off label use [Unknown]

NARRATIVE: CASE EVENT DATE: 202002
